FAERS Safety Report 23303085 (Version 1)
Quarter: 2023Q4

REPORT INFORMATION
  Report Type: Spontaneous
  Country: GB (occurrence: GB)
  Receive Date: 20231215
  Receipt Date: 20231215
  Transmission Date: 20240110
  Serious: Yes (Disabling)
  Sender: FDA-Public Use
  Company Number: GB-MHRA-MED-202311301643028280-ZSVQB

PATIENT
  Age: 50 Year
  Sex: Female

DRUGS (1)
  1. VENLAFAXINE [Suspect]
     Active Substance: VENLAFAXINE HYDROCHLORIDE
     Indication: Menopause
     Dosage: 75MG
     Route: 065
     Dates: start: 20221101, end: 20230320

REACTIONS (7)
  - Medication error [Unknown]
  - Cluster headache [Recovered/Resolved with Sequelae]
  - Electric shock sensation [Recovered/Resolved]
  - Panic attack [Recovered/Resolved with Sequelae]
  - Hypertension [Recovered/Resolved]
  - Sleep terror [Recovered/Resolved]
  - Vision blurred [Recovering/Resolving]

NARRATIVE: CASE EVENT DATE: 20221120
